FAERS Safety Report 5449719-4 (Version None)
Quarter: 2007Q4

REPORT INFORMATION
  Report Type: 
  Country: None (occurrence: None)
  Receive Date: 20070910
  Receipt Date: 20070828
  Transmission Date: 20080405
  Serious: Yes (Hospitalization)
  Sender: FDA-Public Use
  Company Number: 2005P1000253

PATIENT
  Age: 67 Year
  Sex: Female
  Weight: 110 kg

DRUGS (10)
  1. PLACEBO (PLACEBO) [Suspect]
     Indication: ACUTE MYOCARDIAL INFARCTION
     Dosage: 5 IU;BID;IV, 0.25 MG/KG,XI; IV
     Route: 042
     Dates: start: 20050506, end: 20050506
  2. PLACEBO (PLACEBO) [Suspect]
     Indication: ACUTE MYOCARDIAL INFARCTION
     Dosage: 5 IU;BID;IV, 0.25 MG/KG,XI; IV
     Route: 042
     Dates: start: 20050506, end: 20050506
  3. ABCIXIMAB (ABCIXIMAB) [Suspect]
     Indication: ACUTE MYOCARDIAL INFARCTION
     Dosage: 13.8 MG;XI, IV, 39.6 MG,XI, IV
     Route: 042
     Dates: start: 20050506, end: 20050506
  4. ABCIXIMAB (ABCIXIMAB) [Suspect]
     Indication: ACUTE MYOCARDIAL INFARCTION
     Dosage: 13.8 MG;XI, IV, 39.6 MG,XI, IV
     Route: 042
     Dates: start: 20050506, end: 20050506
  5. ASPIRIN [Concomitant]
  6. METOPROLOL SUCCINATE [Concomitant]
  7. CLOPIDOGREL [Concomitant]
  8. FLUVASTATIN [Concomitant]
  9. RAMIPRIL [Concomitant]
  10. FUROSEMIDE [Concomitant]

REACTIONS (1)
  - CORONARY ARTERY STENOSIS [None]
